FAERS Safety Report 4281769-6 (Version None)
Quarter: 2004Q1

REPORT INFORMATION
  Report Type: 
  Country: None (occurrence: None)
  Receive Date: 20040129
  Receipt Date: 20040121
  Transmission Date: 20041129
  Serious: Yes (Death)
  Sender: FDA-Public Use
  Company Number: PHBS2004CA01196

PATIENT

DRUGS (1)
  1. SANDOSTATIN [Suspect]
     Dosage: 100 UG, TID
     Route: 065

REACTIONS (1)
  - DEATH [None]
